FAERS Safety Report 5228327-4 (Version None)
Quarter: 2007Q1

REPORT INFORMATION
  Report Type: 
  Country: None (occurrence: None)
  Receive Date: 20070205
  Receipt Date: 20070124
  Transmission Date: 20070707
  Serious: Yes (Hospitalization)
  Sender: FDA-Public Use
  Company Number: FR-JNJFOC-20061201986

PATIENT
  Age: 65 Year
  Sex: Male

DRUGS (6)
  1. REMICADE [Suspect]
     Indication: RHEUMATOID ARTHRITIS
     Dosage: FIRST INFUSION SEVERAL YEARS AGO
     Route: 042
  2. ARAVA [Concomitant]
     Indication: RHEUMATOID ARTHRITIS
     Route: 065
  3. ASPEGIC 1000 [Concomitant]
     Indication: MYOCARDIAL ISCHAEMIA
     Route: 065
  4. TENORMIN [Concomitant]
     Indication: MYOCARDIAL ISCHAEMIA
     Route: 065
  5. LESCOL [Concomitant]
     Indication: HYPERCHOLESTEROLAEMIA
     Route: 065
  6. CORVASAL [Concomitant]
     Indication: MYOCARDIAL ISCHAEMIA
     Route: 065

REACTIONS (1)
  - LUNG NEOPLASM MALIGNANT [None]
